FAERS Safety Report 15481438 (Version 2)
Quarter: 2018Q4

REPORT INFORMATION
  Report Type: Spontaneous
  Country: FR (occurrence: FR)
  Receive Date: 20181010
  Receipt Date: 20181019
  Transmission Date: 20190205
  Serious: Yes (Hospitalization, Other)
  Sender: FDA-Public Use
  Company Number: FR-ASTRAZENECA-2018SF29473

PATIENT
  Age: 84 Year
  Sex: Male
  Weight: 71 kg

DRUGS (3)
  1. PREVISCAN (FLUINDIONE) [Suspect]
     Active Substance: FLUINDIONE
     Dosage: ALTERNATE DAY (10MG ECH 2 DAYS AND 15MG EACH 2 DAYS)
     Route: 048
  2. PARACETAMOL [Suspect]
     Active Substance: ACETAMINOPHEN
     Indication: PAIN
     Route: 048
  3. ESOMEPRAZOLE MAGNESIUM. [Suspect]
     Active Substance: ESOMEPRAZOLE MAGNESIUM
     Route: 048

REACTIONS (2)
  - Ageusia [Not Recovered/Not Resolved]
  - Anosmia [Not Recovered/Not Resolved]

NARRATIVE: CASE EVENT DATE: 201510
